FAERS Safety Report 25671866 (Version 1)
Quarter: 2025Q3

REPORT INFORMATION
  Report Type: Spontaneous
  Country: JP (occurrence: JP)
  Receive Date: 20250812
  Receipt Date: 20250812
  Transmission Date: 20251020
  Serious: Yes (Hospitalization)
  Sender: ALEXION PHARMACEUTICALS
  Company Number: JP-ASTRAZENECA-202508JPN003854JP

PATIENT
  Age: 8 Decade
  Sex: Female
  Weight: 55 kg

DRUGS (2)
  1. OSIMERTINIB [Suspect]
     Active Substance: OSIMERTINIB
     Indication: Non-small cell lung cancer
  2. EDOXABAN [Concomitant]
     Active Substance: EDOXABAN
     Route: 065

REACTIONS (3)
  - Thrombophlebitis migrans [Unknown]
  - Acute myocardial infarction [Unknown]
  - Cerebral infarction [Unknown]
